FAERS Safety Report 12121862 (Version 1)
Quarter: 2016Q1

REPORT INFORMATION
  Report Type: Spontaneous
  Country: US (occurrence: US)
  Receive Date: 20160226
  Receipt Date: 20160226
  Transmission Date: 20160526
  Serious: No
  Sender: FDA-Public Use
  Company Number: US-ALLERGAN-1521721US

PATIENT
  Age: 68 Year
  Sex: Male
  Weight: 117.91 kg

DRUGS (1)
  1. REFRESH OPTIVE [Suspect]
     Active Substance: CARBOXYMETHYLCELLULOSE SODIUM\GLYCERIN
     Indication: DRY EYE
     Dosage: 1-2 DROPS TO EACH EYE, 3-4 TIMES A DAY
     Route: 047
     Dates: start: 201509

REACTIONS (2)
  - Product dropper issue [Unknown]
  - Eye irritation [Recovered/Resolved]

NARRATIVE: CASE EVENT DATE: 201509
